FAERS Safety Report 20962876 (Version 1)
Quarter: 2022Q2

REPORT INFORMATION
  Report Type: Spontaneous
  Country: US (occurrence: None)
  Receive Date: 20220615
  Receipt Date: 20220615
  Transmission Date: 20220721
  Serious: No
  Sender: FDA-Public Use
  Company Number: 2022A214106

PATIENT
  Sex: Male

DRUGS (2)
  1. LYNPARZA [Suspect]
     Active Substance: OLAPARIB
     Indication: Prostate cancer
     Route: 048
  2. LYNPARZA [Suspect]
     Active Substance: OLAPARIB
     Indication: Prostate cancer
     Dosage: 150 MG, 2 TABLETS, TWO TIMES A DAY
     Route: 048
     Dates: start: 202007

REACTIONS (3)
  - Bone marrow disorder [Unknown]
  - Full blood count abnormal [Unknown]
  - Haemorrhage [Unknown]
